FAERS Safety Report 4739914-1 (Version None)
Quarter: 2005Q3

REPORT INFORMATION
  Report Type: 
  Country: None (occurrence: None)
  Receive Date: 20050810
  Receipt Date: 20030909
  Transmission Date: 20060218
  Serious: Yes (Other)
  Sender: FDA-Public Use
  Company Number: US-GLAXOSMITHKLINE-A0425794A

PATIENT
  Sex: Female

DRUGS (2)
  1. PAXIL [Suspect]
     Indication: ANXIETY
     Route: 048
     Dates: start: 19940401, end: 20010101
  2. XANAX [Concomitant]
     Indication: ANXIETY
     Dosage: .25MG AS REQUIRED
     Route: 048

REACTIONS (8)
  - DECREASED APPETITE [None]
  - DEPENDENCE [None]
  - DRUG WITHDRAWAL SYNDROME [None]
  - HEADACHE [None]
  - NAUSEA [None]
  - OEDEMA PERIPHERAL [None]
  - SLEEP DISORDER [None]
  - SUICIDAL IDEATION [None]
